FAERS Safety Report 9201529 (Version 1)
Quarter: 2013Q2

REPORT INFORMATION
  Report Type: Report from Study
  Country: CA (occurrence: CA)
  Receive Date: 20130401
  Receipt Date: 20130401
  Transmission Date: 20140414
  Serious: Yes (Death, Hospitalization)
  Sender: FDA-Public Use
  Company Number: CA-ASTRAZENECA-2013SE10670

PATIENT
  Age: 86 Year
  Sex: Male

DRUGS (14)
  1. ZOLADEX [Suspect]
     Indication: PROSTATE CANCER
     Route: 058
     Dates: start: 20120511
  2. ZOLADEX [Suspect]
     Indication: PROSTATE CANCER
     Route: 058
     Dates: start: 20120516
  3. ZOLADEX [Suspect]
     Indication: PROSTATE CANCER
     Route: 058
     Dates: start: 20130226
  4. TYLENOL [Concomitant]
  5. GLYBURIDE [Concomitant]
  6. SPIRIVA [Concomitant]
  7. SOLVENT [Concomitant]
  8. METFORMIN [Concomitant]
  9. BICALUTAMIDE [Concomitant]
  10. ATORVASTATIN [Concomitant]
  11. RABEPRAZOLE [Concomitant]
  12. ADVAIR [Concomitant]
  13. FLUTICASONE [Concomitant]
  14. VENTOLIN [Concomitant]

REACTIONS (3)
  - Death [Fatal]
  - Dyspnoea [Not Recovered/Not Resolved]
  - Chronic obstructive pulmonary disease [Not Recovered/Not Resolved]
